FAERS Safety Report 23314999 (Version 5)
Quarter: 2024Q4

REPORT INFORMATION
  Report Type: Spontaneous
  Country: US (occurrence: US)
  Receive Date: 20231219
  Receipt Date: 20241122
  Transmission Date: 20250115
  Serious: No
  Sender: BIOGEN
  Company Number: US-BIOGEN-2023BI01241013

PATIENT
  Sex: Female

DRUGS (28)
  1. AVONEX [Suspect]
     Active Substance: INTERFERON BETA-1A
     Indication: Multiple sclerosis
     Route: 050
     Dates: start: 20160301
  2. AVONEX [Suspect]
     Active Substance: INTERFERON BETA-1A
     Route: 050
     Dates: start: 20040427, end: 20160125
  3. AVONEX [Suspect]
     Active Substance: INTERFERON BETA-1A
  4. AVONEX [Suspect]
     Active Substance: INTERFERON BETA-1A
  5. AVONEX [Suspect]
     Active Substance: INTERFERON BETA-1A
  6. AVONEX [Suspect]
     Active Substance: INTERFERON BETA-1A
  7. AVONEX [Suspect]
     Active Substance: INTERFERON BETA-1A
  8. AVONEX [Suspect]
     Active Substance: INTERFERON BETA-1A
  9. AVONEX [Suspect]
     Active Substance: INTERFERON BETA-1A
  10. AVONEX [Suspect]
     Active Substance: INTERFERON BETA-1A
  11. AVONEX [Suspect]
     Active Substance: INTERFERON BETA-1A
  12. AVONEX [Suspect]
     Active Substance: INTERFERON BETA-1A
  13. AVONEX [Suspect]
     Active Substance: INTERFERON BETA-1A
  14. Oxy pain medication (NOS) [Concomitant]
     Route: 050
  15. CYMBALTA [Concomitant]
     Active Substance: DULOXETINE HYDROCHLORIDE
     Route: 050
  16. BUPROPION HYDROCHLORIDE [Concomitant]
     Active Substance: BUPROPION HYDROCHLORIDE
     Route: 050
  17. LEVOTHYROXINE SODIUM [Concomitant]
     Active Substance: LEVOTHYROXINE SODIUM
     Route: 050
  18. MYRBETRIQ [Concomitant]
     Active Substance: MIRABEGRON
     Route: 050
  19. ESTRADIOL [Concomitant]
     Active Substance: ESTRADIOL
     Route: 050
  20. OMEGA 3 [Concomitant]
     Active Substance: CAPSAICIN
     Route: 050
  21. VITAMIN D [Concomitant]
     Active Substance: VITAMIN D NOS
     Route: 050
  22. VITAMIN K [Concomitant]
     Active Substance: PHYTONADIONE
     Route: 050
  23. NAPROXEN SODIUM [Concomitant]
     Active Substance: NAPROXEN SODIUM
     Route: 050
  24. TYLENOL [Concomitant]
     Active Substance: ACETAMINOPHEN
     Route: 050
  25. BIOTIN [Concomitant]
     Active Substance: BIOTIN
     Route: 050
  26. MAGNESIUM [Concomitant]
     Active Substance: MAGNESIUM
     Route: 050
  27. CAFFEINE [Concomitant]
     Active Substance: CAFFEINE
     Route: 050
  28. NASACORT AQ [Concomitant]
     Active Substance: TRIAMCINOLONE ACETONIDE
     Route: 050

REACTIONS (6)
  - Product dose omission in error [Unknown]
  - Tendon rupture [Unknown]
  - Delayed recovery from anaesthesia [Unknown]
  - Gait disturbance [Unknown]
  - Anxiety [Unknown]
  - Stress [Unknown]
